FAERS Safety Report 7552135-2 (Version None)
Quarter: 2011Q2

REPORT INFORMATION
  Report Type: 
  Country: None (occurrence: None)
  Receive Date: 20110616
  Receipt Date: 20110601
  Transmission Date: 20111010
  Serious: Yes (Life-Threatening, Other)
  Sender: FDA-Public Use
  Company Number: US-BAYER-2011-024089

PATIENT
  Age: 25 Year
  Sex: Female
  Weight: 72.562 kg

DRUGS (2)
  1. NSAID'S [Concomitant]
  2. YAZ [Suspect]
     Indication: ACNE
     Dosage: UNK
     Dates: start: 20071201, end: 20080601

REACTIONS (8)
  - CHOLECYSTITIS [None]
  - ANHEDONIA [None]
  - EMOTIONAL DISTRESS [None]
  - THROMBOSIS [None]
  - PAIN [None]
  - GALLBLADDER DISORDER [None]
  - GENERAL PHYSICAL HEALTH DETERIORATION [None]
  - INJURY [None]
